FAERS Safety Report 5912867-6 (Version None)
Quarter: 2008Q4

REPORT INFORMATION
  Report Type: 
  Country: None (occurrence: None)
  Receive Date: 20081003
  Receipt Date: 20080825
  Transmission Date: 20090506
  Serious: Yes (Life-Threatening, Hospitalization)
  Sender: FDA-Public Use
  Company Number: 2008AL009660

PATIENT
  Age: 55 Year
  Sex: Male

DRUGS (10)
  1. DICLOFENAC SODIUM [Suspect]
     Indication: DRUG USE FOR UNKNOWN INDICATION
  2. DIAZEPAM [Suspect]
     Indication: DRUG USE FOR UNKNOWN INDICATION
  3. INSULIN DETEMIR [Concomitant]
  4. LANSOPRAZOLE [Concomitant]
  5. ROSUVASTATIN CALCIUM [Concomitant]
  6. RAMIPRIL [Concomitant]
  7. NOVORAPID [Concomitant]
  8. CLINDAMYCIN HCL [Concomitant]
  9. CIPROFLOXACIN [Concomitant]
  10. RIFAMPICIN [Concomitant]

REACTIONS (17)
  - BLOOD BLISTER [None]
  - BLOOD CREATININE INCREASED [None]
  - BLOOD UREA INCREASED [None]
  - C-REACTIVE PROTEIN INCREASED [None]
  - CONJUNCTIVITIS [None]
  - GENERAL PHYSICAL HEALTH DETERIORATION [None]
  - HERPES ZOSTER DISSEMINATED [None]
  - LEUKOCYTOSIS [None]
  - MOUTH HAEMORRHAGE [None]
  - NEUROPATHIC ULCER [None]
  - NIKOLSKY'S SIGN [None]
  - RASH MACULAR [None]
  - RENAL IMPAIRMENT [None]
  - SCAB [None]
  - SEPSIS [None]
  - SKIN EXFOLIATION [None]
  - TOXIC EPIDERMAL NECROLYSIS [None]
